FAERS Safety Report 13205892 (Version 3)
Quarter: 2020Q2

REPORT INFORMATION
  Report Type: Spontaneous
  Country: US (occurrence: US)
  Receive Date: 20170209
  Receipt Date: 20200521
  Transmission Date: 20200713
  Serious: No
  Sender: FDA-Public Use
  Company Number: US-PFIZER INC-2017055097

PATIENT
  Age: 61 Year
  Sex: Female

DRUGS (21)
  1. XANAX [Concomitant]
     Active Substance: ALPRAZOLAM
     Dosage: 0.5 MG, AS NEEDED 0.5 MG, (ONCE EVERY DAY AS NEEDED)
     Route: 048
  2. FLONASE [Concomitant]
     Active Substance: FLUTICASONE PROPIONATE
     Dosage: 50 UG, AS NEEDED (INHALE 50 MCG IN BOTH NOSTRILS AS NEEDED.)
     Route: 045
  3. XOPENEX [Concomitant]
     Active Substance: LEVALBUTEROL HYDROCHLORIDE
     Dosage: UNK, AS NEEDED (INHALE 2 PUFFS BY MOUTH AS NEEDED)
     Route: 055
  4. SYNTHROID [Concomitant]
     Active Substance: LEVOTHYROXINE SODIUM
     Dosage: 175 UG, DAILY
     Route: 048
  5. SCOPOLAMINE HBR [Concomitant]
     Active Substance: SCOPOLAMINE
     Dosage: 0.1 ML, 2X/DAY (0.1 ML TO A CLEAN DRY AREA TWICE A DAY)
  6. CLIMARA [Concomitant]
     Active Substance: ESTRADIOL
     Dosage: 0.05 MG/24H, WEEKLY 0.05 MG/24H, (APPLY 1 PATCH TO A CLEAN DRY AREA ONCE EVERY WEEK)
  7. GENOTROPIN [Suspect]
     Active Substance: SOMATROPIN
     Indication: HYPOPITUITARISM
     Dosage: 0.2 MG, DAILY
     Route: 058
     Dates: start: 201507
  8. GENOTROPIN [Suspect]
     Active Substance: SOMATROPIN
     Indication: PITUITARY TUMOUR BENIGN
     Dosage: 0.2 MG, DAILY
     Route: 058
     Dates: start: 20150814
  9. MECLIZINE [Concomitant]
     Active Substance: MECLIZINE HYDROCHLORIDE
     Dosage: UNK (0.25 OF A 20 MG TAB)
     Route: 048
  10. ZOFRAN [Concomitant]
     Active Substance: ONDANSETRON HYDROCHLORIDE
     Indication: NAUSEA
     Dosage: 4 MG, AS NEEDED (TAKE 1 TABLET BY MOUTH THREE TIMES A DAY AS NEEDED)
     Route: 048
  11. VITAMIN D3 [Concomitant]
     Active Substance: CHOLECALCIFEROL
     Dosage: 2000 IU, UNK
     Route: 048
  12. SINGULAIR [Concomitant]
     Active Substance: MONTELUKAST SODIUM
     Dosage: 10 MG, DAILY
     Route: 048
  13. ZOFRAN [Concomitant]
     Active Substance: ONDANSETRON HYDROCHLORIDE
     Indication: VOMITING
  14. PROTONIX [Concomitant]
     Active Substance: PANTOPRAZOLE SODIUM
     Dosage: 40 MG, DAILY
     Route: 048
  15. ATACAND [Concomitant]
     Active Substance: CANDESARTAN CILEXETIL
     Dosage: 8 MG, DAILY
     Route: 048
  16. COLACE [Concomitant]
     Active Substance: DOCUSATE SODIUM
     Dosage: 250 MG, AS NEEDED
     Route: 048
  17. CYMBALTA [Concomitant]
     Active Substance: DULOXETINE HYDROCHLORIDE
     Dosage: 60 MG, DAILY
     Route: 048
  18. FOLATE [Concomitant]
     Active Substance: FOLATE SODIUM
     Dosage: 1 MG, UNK
     Route: 048
  19. CORTEF [Concomitant]
     Active Substance: HYDROCORTISONE
     Dosage: 20 MG, UNK
     Route: 048
  20. WELLBUTRIN [Concomitant]
     Active Substance: BUPROPION HYDROCHLORIDE
     Dosage: 100 MG, 2X/DAY
     Route: 048
  21. RHEUMATREX [Concomitant]
     Active Substance: METHOTREXATE SODIUM
     Dosage: 5 MG, WEEKLY 5 MG, (ONCE EVERY WEEK)
     Route: 048

REACTIONS (1)
  - Arthralgia [Recovered/Resolved]
